FAERS Safety Report 19278114 (Version 1)
Quarter: 2021Q2

REPORT INFORMATION
  Report Type: Spontaneous
  Country: US (occurrence: US)
  Receive Date: 20210519
  Receipt Date: 20210519
  Transmission Date: 20210717
  Serious: No
  Sender: FDA-Public Use
  Company Number: None

PATIENT
  Sex: Female

DRUGS (1)
  1. DOFETILIDE CAP [Suspect]
     Active Substance: DOFETILIDE
     Indication: MALIGNANT MELANOMA
     Dosage: 25? UNK
     Route: 048
     Dates: start: 20180217

REACTIONS (2)
  - Cerebrovascular accident [None]
  - Therapy interrupted [None]
